FAERS Safety Report 8030606-2 (Version None)
Quarter: 2012Q1

REPORT INFORMATION
  Report Type: 
  Country: None (occurrence: None)
  Receive Date: 20120105
  Receipt Date: 20111222
  Transmission Date: 20120608
  Serious: Yes (Hospitalization, Other)
  Sender: FDA-Public Use
  Company Number: DAV-AE-PYR-12-001

PATIENT
  Age: 7 Year
  Sex: Male

DRUGS (7)
  1. FLUCONAZOLE [Concomitant]
  2. ETHAMBUTOL HYDROCHLORIDE [Concomitant]
  3. ISONIAZID [Concomitant]
  4. CEFTRIAXONE [Concomitant]
  5. PYRIDOXINE HCL [Concomitant]
  6. RIFAMPICIN [Concomitant]
  7. PYRAZINAMIDE [Suspect]
     Indication: TUBERCULOSIS

REACTIONS (9)
  - HAEMATOCRIT DECREASED [None]
  - HEPATOSPLENOMEGALY [None]
  - MENTAL STATUS CHANGES [None]
  - AGGRESSION [None]
  - MIOSIS [None]
  - INTERNATIONAL NORMALISED RATIO INCREASED [None]
  - LEUKOCYTOSIS [None]
  - DISORIENTATION [None]
  - ACUTE HEPATIC FAILURE [None]
